FAERS Safety Report 17741055 (Version 1)
Quarter: 2020Q2

REPORT INFORMATION
  Report Type: Spontaneous
  Country: PL (occurrence: PL)
  Receive Date: 20200504
  Receipt Date: 20200504
  Transmission Date: 20200714
  Serious: Yes (Other)
  Sender: FDA-Public Use
  Company Number: NVSC2020PL115911

PATIENT
  Age: 72 Year
  Sex: Female

DRUGS (7)
  1. ATORVOX [Concomitant]
     Active Substance: ATORVASTATIN
     Indication: PRODUCT USED FOR UNKNOWN INDICATION
     Dosage: 20 MG, QD
     Route: 065
  2. KISQALI [Suspect]
     Active Substance: RIBOCICLIB
     Indication: BREAST CANCER METASTATIC
     Dosage: 600 MG, QD (21/28)
     Route: 065
     Dates: start: 20190114
  3. INDAPEN [Concomitant]
     Active Substance: INDAPAMIDE
     Indication: PRODUCT USED FOR UNKNOWN INDICATION
     Dosage: UNK, QD IN THE MORNING
     Route: 065
  4. ACARD [Concomitant]
     Active Substance: ASPIRIN
     Indication: PRODUCT USED FOR UNKNOWN INDICATION
     Dosage: 75 MG, QD
     Route: 065
  5. CO PRESTARIUM [Concomitant]
     Indication: PRODUCT USED FOR UNKNOWN INDICATION
     Dosage: 1 DF, QD
     Route: 065
  6. KISQALI [Suspect]
     Active Substance: RIBOCICLIB
     Dosage: 600 MG, QD
     Route: 065
     Dates: start: 20190613
  7. LORISTA [Concomitant]
     Active Substance: LOSARTAN POTASSIUM
     Indication: PRODUCT USED FOR UNKNOWN INDICATION
     Dosage: 50 MG, QD IN THE EVENING
     Route: 065

REACTIONS (6)
  - Mitral valve disease [Unknown]
  - Atrial fibrillation [Unknown]
  - Aortic valve disease [Unknown]
  - Heart rate irregular [Unknown]
  - Neutropenia [Unknown]
  - Electrocardiogram Q wave abnormal [Unknown]

NARRATIVE: CASE EVENT DATE: 20190509
